FAERS Safety Report 15104720 (Version 1)
Quarter: 2018Q3

REPORT INFORMATION
  Report Type: Spontaneous
  Country: US (occurrence: US)
  Receive Date: 20180703
  Receipt Date: 20180703
  Transmission Date: 20181010
  Serious: No
  Sender: FDA-Public Use
  Company Number: US-BAUSCH-BL-2018-008984

PATIENT
  Sex: Male

DRUGS (1)
  1. BESIVANCE [Suspect]
     Active Substance: BESIFLOXACIN
     Indication: EYE INFECTION
     Dosage: 6 GTT (6 DROPS)
     Route: 047
     Dates: start: 20180320

REACTIONS (2)
  - Drug dose omission [Recovered/Resolved]
  - Eye irritation [Not Recovered/Not Resolved]

NARRATIVE: CASE EVENT DATE: 201803
